FAERS Safety Report 9541433 (Version 1)
Quarter: 2013Q3

REPORT INFORMATION
  Report Type: Spontaneous
  Country: US (occurrence: None)
  Receive Date: 20130919
  Receipt Date: 20130919
  Transmission Date: 20140515
  Serious: No
  Sender: FDA-Public Use
  Company Number: None

PATIENT
  Sex: Male

DRUGS (1)
  1. HUMIRA 40MG ABB VIE [Suspect]
     Dosage: 40MG EVERY 14 DAYS SUB Q?
     Route: 058
     Dates: start: 20120719

REACTIONS (1)
  - Hypersensitivity [None]
